FAERS Safety Report 7289947-9 (Version None)
Quarter: 2011Q1

REPORT INFORMATION
  Report Type: 
  Country: None (occurrence: None)
  Receive Date: 20110214
  Receipt Date: 20110202
  Transmission Date: 20110831
  Serious: Yes (Hospitalization)
  Sender: FDA-Public Use
  Company Number: ES-JNJFOC-20110203134

PATIENT
  Age: 78 Year
  Sex: Male

DRUGS (3)
  1. NEURONTIN [Concomitant]
     Indication: ANALGESIC THERAPY
  2. TRAMADOL HYDROCHLORIDE [Suspect]
     Indication: ANALGESIC THERAPY
     Route: 048
  3. TRAMADOL HYDROCHLORIDE [Suspect]
     Route: 048

REACTIONS (4)
  - CONFUSIONAL STATE [None]
  - ILEUS PARALYTIC [None]
  - SOMNOLENCE [None]
  - OVERDOSE [None]
